FAERS Safety Report 8637407 (Version 3)
Quarter: 2013Q2

REPORT INFORMATION
  Report Type: Report from Study
  Country: IT (occurrence: IT)
  Receive Date: 20120627
  Receipt Date: 20130430
  Transmission Date: 20140414
  Serious: Yes (Death)
  Sender: FDA-Public Use
  Company Number: IT-CELGENEUS-083-21880-12061936

PATIENT
  Sex: 0

DRUGS (3)
  1. REVLIMID [Suspect]
     Indication: NON-HODGKIN^S LYMPHOMA
     Dosage: 25 MILLIGRAM
     Route: 048
     Dates: start: 20100809, end: 20100919
  2. REVLIMID [Suspect]
     Dosage: 25 MILLIGRAM
     Route: 048
     Dates: start: 20100920, end: 20101010
  3. DEXAMETHASONE [Concomitant]
     Indication: LYMPHOMA
     Route: 065
     Dates: start: 20100809, end: 20100919

REACTIONS (4)
  - Non-Hodgkin^s lymphoma [Fatal]
  - Diarrhoea [Unknown]
  - Thrombocytopenia [Unknown]
  - Neutropenia [Unknown]
